FAERS Safety Report 9791918 (Version 1)
Quarter: 2014Q1

REPORT INFORMATION
  Report Type: Spontaneous
  Country: GB (occurrence: GB)
  Receive Date: 20140102
  Receipt Date: 20140102
  Transmission Date: 20141002
  Serious: Yes (Other)
  Sender: FDA-Public Use
  Company Number: GB-TEVA-453523ISR

PATIENT
  Age: 39 Year
  Sex: Male

DRUGS (4)
  1. PREDNISOLONE [Suspect]
     Indication: AUTOIMMUNE HAEMOLYTIC ANAEMIA
     Dosage: 30 MILLIGRAM DAILY;
     Route: 065
  2. PREDNISOLONE [Suspect]
     Dosage: 10 MILLIGRAM DAILY; SUBSEQUENTLY REDUCED FROM 30 TO 10 MG/DAY
  3. CAMPATH [Suspect]
     Indication: IMMUNOSUPPRESSION
     Route: 065
  4. RITUXIMAB [Concomitant]
     Indication: AUTOIMMUNE HAEMOLYTIC ANAEMIA
     Route: 065

REACTIONS (2)
  - Diabetes mellitus [Unknown]
  - Hypertension [Unknown]
